FAERS Safety Report 7826023-8 (Version None)
Quarter: 2011Q4

REPORT INFORMATION
  Report Type: 
  Country: None (occurrence: None)
  Receive Date: 20111019
  Receipt Date: 20111017
  Transmission Date: 20120403
  Serious: Yes (Hospitalization)
  Sender: FDA-Public Use
  Company Number: CA-MERCK-1110USA02402

PATIENT
  Age: 65 Year
  Sex: Female

DRUGS (5)
  1. OLANZAPINE [Concomitant]
     Route: 065
  2. ISENTRESS [Suspect]
     Route: 048
  3. CLONAZEPAM [Concomitant]
     Route: 065
  4. LAMIVUDINE [Concomitant]
     Route: 065
  5. ABACAVIR SULFATE [Concomitant]
     Route: 065

REACTIONS (6)
  - ASPARTATE AMINOTRANSFERASE INCREASED [None]
  - DELIRIUM [None]
  - LACUNAR INFARCTION [None]
  - MENTAL STATUS CHANGES [None]
  - ALANINE AMINOTRANSFERASE INCREASED [None]
  - MEMORY IMPAIRMENT [None]
